FAERS Safety Report 4672698-4 (Version None)
Quarter: 2005Q2

REPORT INFORMATION
  Report Type: 
  Country: None (occurrence: None)
  Receive Date: 20050524
  Receipt Date: 20050518
  Transmission Date: 20051028
  Serious: Yes (Hospitalization)
  Sender: FDA-Public Use
  Company Number: ES-ROCHE-405128

PATIENT
  Age: 53 Year
  Sex: Male

DRUGS (4)
  1. DACLIZUMAB [Suspect]
     Route: 042
  2. MYCOPHENOLATE MOFETIL [Suspect]
     Route: 065
  3. TACROLIMUS [Suspect]
     Route: 065
  4. CORTICOSTEROID NOS [Suspect]
     Route: 065

REACTIONS (1)
  - CYTOMEGALOVIRUS INFECTION [None]
